FAERS Safety Report 10214465 (Version 1)
Quarter: 2014Q2

REPORT INFORMATION
  Report Type: Spontaneous
  Country: BR (occurrence: BR)
  Receive Date: 20140603
  Receipt Date: 20140603
  Transmission Date: 20141212
  Serious: Yes (Other)
  Sender: FDA-Public Use
  Company Number: BR-PFIZER INC-2014148550

PATIENT
  Sex: Female

DRUGS (1)
  1. CELEBRA [Suspect]
     Route: 048

REACTIONS (14)
  - Urinary retention [Unknown]
  - Hypertension [Unknown]
  - Chest pain [Unknown]
  - Abdominal pain upper [Unknown]
  - Flatulence [Unknown]
  - Cough [Unknown]
  - Vomiting [Unknown]
  - Pruritus [Unknown]
  - Dizziness [Unknown]
  - Oropharyngeal pain [Unknown]
  - Weight increased [Unknown]
  - Tinnitus [Unknown]
  - Abdominal distension [Unknown]
  - Dysgeusia [Unknown]
